FAERS Safety Report 18381714 (Version 3)
Quarter: 2021Q1

REPORT INFORMATION
  Report Type: Spontaneous
  Country: JP (occurrence: JP)
  Receive Date: 20201014
  Receipt Date: 20210107
  Transmission Date: 20210419
  Serious: Yes (Other)
  Sender: FDA-Public Use
  Company Number: JP-BRISTOL-MYERS SQUIBB COMPANY-BMS-2020-083253

PATIENT
  Age: 78 Year
  Sex: Female
  Weight: 37.3 kg

DRUGS (17)
  1. AMLODIPINE [Concomitant]
     Active Substance: AMLODIPINE BESYLATE
     Indication: PRODUCT USED FOR UNKNOWN INDICATION
     Dosage: 5 MILLIGRAM, QD
     Route: 048
     Dates: start: 20111115
  2. ORENCIA [Suspect]
     Active Substance: ABATACEPT
     Dosage: 500 MILLIGRAM, ONE TIME DOSE
     Route: 041
     Dates: start: 20200218, end: 20200218
  3. ORENCIA [Suspect]
     Active Substance: ABATACEPT
     Dosage: 500 MILLIGRAM, ONE TIME DOSE
     Route: 041
     Dates: start: 20200609, end: 20200609
  4. THYRADIN [Concomitant]
     Active Substance: LEVOTHYROXINE
     Indication: HYPOTHYROIDISM
     Dosage: 75 MICROGRAM, QD
     Route: 048
     Dates: start: 2001
  5. ORENCIA [Suspect]
     Active Substance: ABATACEPT
     Indication: RHEUMATOID ARTHRITIS
     Dosage: 500 MILLIGRAM, ONE TIME DOSE
     Route: 041
     Dates: start: 20191122, end: 20191122
  6. ORENCIA [Suspect]
     Active Substance: ABATACEPT
     Dosage: 500 MILLIGRAM, ONE TIME DOSE
     Route: 041
     Dates: start: 20191224, end: 20191224
  7. LANSOPRAZOLE. [Concomitant]
     Active Substance: LANSOPRAZOLE
     Indication: PRODUCT USED FOR UNKNOWN INDICATION
     Dosage: 15 MILLIGRAM, QD
     Route: 048
     Dates: start: 20150310
  8. ORENCIA [Suspect]
     Active Substance: ABATACEPT
     Dosage: 500 MILLIGRAM, ONE TIME DOSE
     Route: 041
     Dates: start: 20200121, end: 20200121
  9. TRAMCET [Concomitant]
     Active Substance: ACETAMINOPHEN\TRAMADOL
     Indication: PRODUCT USED FOR UNKNOWN INDICATION
     Dosage: UNK, QID
     Route: 048
     Dates: start: 20180911, end: 20200512
  10. ERYTHROCIN #2 [Concomitant]
     Indication: PRODUCT USED FOR UNKNOWN INDICATION
     Dosage: 200 MILLIGRAM, BID
     Route: 048
     Dates: start: 20141117
  11. ORENCIA [Suspect]
     Active Substance: ABATACEPT
     Dosage: 500 MILLIGRAM, ONE TIME DOSE
     Route: 041
     Dates: start: 20200512, end: 20200512
  12. ORENCIA [Suspect]
     Active Substance: ABATACEPT
     Dosage: 500 MILLIGRAM, ONE TIME DOSE
     Route: 041
     Dates: start: 20200707, end: 20200707
  13. ORENCIA [Suspect]
     Active Substance: ABATACEPT
     Dosage: 500 MILLIGRAM, ONE TIME DOSE
     Route: 041
     Dates: start: 20200317, end: 20200317
  14. ORENCIA [Suspect]
     Active Substance: ABATACEPT
     Dosage: 500 MILLIGRAM, ONE TIME DOSE
     Route: 041
     Dates: start: 20200414, end: 20200414
  15. ORENCIA [Suspect]
     Active Substance: ABATACEPT
     Dosage: 500 MILLIGRAM, ONE TIME DOSE
     Route: 041
     Dates: start: 20200811, end: 20200811
  16. PROGRAF [Concomitant]
     Active Substance: TACROLIMUS
     Indication: RHEUMATOID ARTHRITIS
     Dosage: 2 MILLIGRAM, QD
     Route: 048
     Dates: start: 20180731
  17. MAGNESIUM OXIDE. [Concomitant]
     Active Substance: MAGNESIUM OXIDE
     Indication: PRODUCT USED FOR UNKNOWN INDICATION
     Dosage: 330 MILLIGRAM, BID
     Route: 048
     Dates: start: 20180925

REACTIONS (1)
  - Hypothyroidism [Recovered/Resolved]

NARRATIVE: CASE EVENT DATE: 20191204
